FAERS Safety Report 9966110 (Version 1)
Quarter: 2014Q1

REPORT INFORMATION
  Report Type: Report from Study
  Country: US (occurrence: US)
  Receive Date: 20140305
  Receipt Date: 20140305
  Transmission Date: 20141002
  Serious: No
  Sender: FDA-Public Use
  Company Number: US-ABBVIE-13P-163-1122155-00

PATIENT
  Age: 50 Year
  Sex: Female

DRUGS (10)
  1. HUMIRA [Suspect]
     Indication: PSORIATIC ARTHROPATHY
     Dates: start: 20130614
  2. PRILOSEC [Concomitant]
     Indication: ULCER
  3. PRILOSEC [Concomitant]
     Indication: GASTROOESOPHAGEAL REFLUX DISEASE
  4. CELEXA [Concomitant]
     Indication: DEPRESSION
  5. GENERIC ZYRTEC [Concomitant]
     Indication: HYPERSENSITIVITY
  6. NORVASC [Concomitant]
     Indication: BLOOD PRESSURE
  7. XANAX [Concomitant]
     Indication: INSOMNIA
     Dosage: 5MG AT BEDTIME
  8. CALCIUM [Concomitant]
     Indication: MINERAL SUPPLEMENTATION
  9. VITAMIN E [Concomitant]
     Indication: VITAMIN SUPPLEMENTATION
  10. MULTIVITAMIN [Concomitant]
     Indication: VITAMIN SUPPLEMENTATION

REACTIONS (4)
  - Sneezing [Not Recovered/Not Resolved]
  - Nasal congestion [Not Recovered/Not Resolved]
  - Nasopharyngitis [Not Recovered/Not Resolved]
  - Dyspnoea [Not Recovered/Not Resolved]
